FAERS Safety Report 9846105 (Version 1)
Quarter: 2013Q4

REPORT INFORMATION
  Report Type: Spontaneous
  Country: US (occurrence: None)
  Receive Date: 20131223
  Receipt Date: 20131223
  Transmission Date: 20140711
  Serious: Yes (Other)
  Sender: FDA-Public Use
  Company Number: SYM-2013-10139

PATIENT
  Age: 49 Year
  Sex: Male

DRUGS (1)
  1. XENAZINE [Suspect]
     Indication: HUNTINGTON^S DISEASE
     Dosage: 25 MG, 4 IN 1 D, ORAL
     Route: 048
     Dates: start: 20130522

REACTIONS (2)
  - Anxiety [None]
  - Panic attack [None]
